FAERS Safety Report 16347449 (Version 1)
Quarter: 2019Q3

REPORT INFORMATION
  Report Type: Spontaneous
  Country: US (occurrence: US)
  Receive Date: 20190522
  Receipt Date: 20190522
  Transmission Date: 20191004
  Serious: No
  Sender: FDA-Public Use
  Company Number: None

PATIENT
  Age: 7 Year
  Sex: Male

DRUGS (10)
  1. PULMOZYME [Concomitant]
     Active Substance: DORNASE ALFA
  2. URSODIOL 250 MG [Concomitant]
     Active Substance: URSODIOL
  3. MONTELUKAST 4 MG [Concomitant]
  4. FLUTICASONE 50 MCG NASAL [Concomitant]
  5. PREVACID 15 MG [Concomitant]
  6. ALBUTEROL 0.083% NEB [Concomitant]
  7. ORKAMBI [Suspect]
     Active Substance: IVACAFTOR\LUMACAFTOR
     Indication: CYSTIC FIBROSIS
     Route: 048
  8. AZELASTINE 0.1% NASAL [Concomitant]
  9. CETIRIZINE 1MG/ML [Concomitant]
  10. CREON 12000 UNITS [Concomitant]

REACTIONS (1)
  - Sinusitis [None]

NARRATIVE: CASE EVENT DATE: 20190522
